FAERS Safety Report 6421661-1 (Version None)
Quarter: 2009Q4

REPORT INFORMATION
  Report Type: 
  Country: None (occurrence: None)
  Receive Date: 20091030
  Receipt Date: 20091015
  Transmission Date: 20100525
  Serious: Yes (Hospitalization)
  Sender: FDA-Public Use
  Company Number: HU-ROCHE-660892

PATIENT
  Sex: Female
  Weight: 82 kg

DRUGS (5)
  1. PEG-INTERFERON ALFA 2A (RO 25-8310) [Suspect]
     Indication: HEPATITIS C
     Dosage: LAST DOSE PRIOR TO SAE: 30 SEPTEMBER 2009
     Route: 058
     Dates: start: 20080827
  2. RIBAVIRIN [Suspect]
     Indication: HEPATITIS C
     Dosage: LAST DOSE PRIOR TO SAE: 05 OCTOBER 2009
     Route: 048
     Dates: start: 20080827
  3. BISOPROLOL [Concomitant]
  4. LEVOTHYROXINE SODIUM [Concomitant]
  5. HYDROCHLOROTHIAZIDE/RAMIPRIL [Concomitant]

REACTIONS (1)
  - OVARIAN CYST [None]
